FAERS Safety Report 4764111-3 (Version None)
Quarter: 2005Q3

REPORT INFORMATION
  Report Type: 
  Country: None (occurrence: None)
  Receive Date: 20050908
  Receipt Date: 20050310
  Transmission Date: 20060218
  Serious: Yes (Hospitalization, Disabling)
  Sender: FDA-Public Use
  Company Number: US-MERCK-0503USA01899

PATIENT
  Age: 52 Year
  Sex: Male
  Weight: 82 kg

DRUGS (18)
  1. VIOXX [Suspect]
     Indication: ARTHRITIS
     Route: 048
     Dates: start: 20030601, end: 20041021
  2. DUAC [Concomitant]
     Route: 065
  3. VIAGRA [Concomitant]
     Route: 065
  4. NIFEDIPINE [Concomitant]
     Indication: HYPERTENSION
     Route: 065
     Dates: start: 20030101, end: 20040101
  5. PHENOBARBITAL [Concomitant]
     Route: 065
     Dates: end: 20040101
  6. NEXIUM [Concomitant]
     Route: 065
  7. CIALIS [Concomitant]
     Route: 065
  8. PLEXION [Concomitant]
     Route: 065
  9. RANITIDINE [Concomitant]
     Route: 065
  10. MOMETASONE FUROATE [Concomitant]
     Route: 065
  11. METHYLPREDNISOLONE [Concomitant]
     Route: 065
  12. MINOCYCLINE [Concomitant]
     Route: 065
  13. PROCARDIA [Concomitant]
     Indication: CARDIAC DISORDER
     Route: 065
     Dates: start: 20040101
  14. ZOCOR [Concomitant]
     Route: 065
     Dates: start: 20040101
  15. PLAVIX [Concomitant]
     Indication: CARDIAC OPERATION
     Route: 065
     Dates: start: 20040101
  16. TYLENOL [Concomitant]
     Route: 065
  17. KEPPRA [Concomitant]
     Route: 065
     Dates: start: 20040101
  18. DILANTIN [Suspect]
     Route: 065
     Dates: end: 20040101

REACTIONS (36)
  - AMNESIA [None]
  - ANAEMIA [None]
  - ANXIETY [None]
  - ASTHENIA [None]
  - BLOOD CHOLESTEROL INCREASED [None]
  - CARDIAC ARREST [None]
  - CARDIOMYOPATHY [None]
  - CAROTID ARTERY OCCLUSION [None]
  - CAROTID ARTERY STENOSIS [None]
  - CEREBRAL ARTERY OCCLUSION [None]
  - CEREBRAL ARTERY STENOSIS [None]
  - CEREBRAL INFARCTION [None]
  - CEREBROVASCULAR ACCIDENT [None]
  - COGNITIVE DISORDER [None]
  - CONFUSIONAL STATE [None]
  - CORONARY ARTERY DISEASE [None]
  - DEPRESSION [None]
  - DYSPHAGIA [None]
  - ENCEPHALOPATHY [None]
  - FALL [None]
  - GASTROOESOPHAGEAL REFLUX DISEASE [None]
  - HAEMATURIA [None]
  - HEMIPLEGIA TRANSIENT [None]
  - HYDROCEPHALUS [None]
  - INJURY [None]
  - KLEBSIELLA INFECTION [None]
  - LOSS OF CONSCIOUSNESS [None]
  - MYOCARDIAL INFARCTION [None]
  - POST-TRAUMATIC STRESS DISORDER [None]
  - PULSE ABSENT [None]
  - RENAL FAILURE ACUTE [None]
  - RESPIRATORY DISORDER [None]
  - TORSADE DE POINTES [None]
  - TRANSIENT ISCHAEMIC ATTACK [None]
  - URINARY TRACT INFECTION [None]
  - VENTRICULAR FIBRILLATION [None]
